FAERS Safety Report 10013642 (Version 1)
Quarter: 2014Q1

REPORT INFORMATION
  Report Type: Spontaneous
  Country: US (occurrence: US)
  Receive Date: 20140315
  Receipt Date: 20140315
  Transmission Date: 20141002
  Serious: No
  Sender: FDA-Public Use
  Company Number: US-009507513-1403USA006078

PATIENT
  Age: 42 Year
  Sex: Female

DRUGS (6)
  1. CORICIDIN HBP COLD AND FLU [Suspect]
     Indication: NASOPHARYNGITIS
     Dosage: 2 DF, UNKNOWN
     Route: 048
  2. CORICIDIN HBP COLD AND FLU [Suspect]
     Indication: LACRIMATION INCREASED
  3. CORICIDIN HBP COLD AND FLU [Suspect]
     Indication: NASAL DISCOMFORT
  4. CORICIDIN HBP COLD AND FLU [Suspect]
     Indication: RHINORRHOEA
  5. CORICIDIN HBP COLD AND FLU [Suspect]
     Indication: OROPHARYNGEAL PAIN
  6. CORICIDIN HBP COLD AND FLU [Suspect]
     Indication: COUGH

REACTIONS (1)
  - Fatigue [Unknown]
